FAERS Safety Report 11106937 (Version 1)
Quarter: 2015Q2

REPORT INFORMATION
  Report Type: Spontaneous
  Country: PT (occurrence: None)
  Receive Date: 20150508
  Receipt Date: 20150508
  Transmission Date: 20150821
  Serious: Yes (Hospitalization)
  Sender: FDA-Public Use
  Company Number: PT-ZYDUS-007896

PATIENT
  Age: 68 Year
  Sex: Female

DRUGS (19)
  1. TRIHEXYPHENIDYL (TRIHEXYPHENIDYL) [Suspect]
     Active Substance: TRIHEXYPHENIDYL
  2. OMEPRAZOLE. [Concomitant]
     Active Substance: OMEPRAZOLE
  3. BETAHISTINE [Concomitant]
     Active Substance: BETAHISTINE
  4. ACECLOFENAC [Concomitant]
     Active Substance: ACECLOFENAC
  5. PAROXETINE [Suspect]
     Active Substance: PAROXETINE\PAROXETINE HYDROCHLORIDE
  6. ALPRAZOLAM (ALPRAZOLAM) [Suspect]
     Active Substance: ALPRAZOLAM
  7. CLIDINIUM BROMIDE [Concomitant]
     Active Substance: CLIDINIUM BROMIDE
  8. PROPRANOLOL [Concomitant]
     Active Substance: PROPRANOLOL\PROPRANOLOL HYDROCHLORIDE
  9. ALFUZOSIN [Concomitant]
     Active Substance: ALFUZOSIN
  10. CHLORDIAZEPOXIDE (CHLORDIAZEPOXIDE) (CHLORDIAZEPOXIDE) [Suspect]
     Active Substance: CHLORDIAZEPOXIDE
  11. TRIMETAZIDINE [Concomitant]
     Active Substance: TRIMETAZIDINE
  12. TRAZODONE [Suspect]
     Active Substance: TRAZODONE HYDROCHLORIDE
  13. CELECOXIB. [Concomitant]
     Active Substance: CELECOXIB
  14. GLUCOSAMINE [Concomitant]
     Active Substance: GLUCOSAMINE
  15. OTILONIUM BROMIDE [Concomitant]
     Active Substance: OTILONIUM BROMIDE
  16. CITICOLINE [Concomitant]
     Active Substance: CITICOLINE
  17. ETORICOXIB [Concomitant]
     Active Substance: ETORICOXIB
  18. DEFLAZACORT [Concomitant]
     Active Substance: DEFLAZACORT
  19. SIMVASTATIN. [Suspect]
     Active Substance: SIMVASTATIN

REACTIONS (8)
  - Cognitive disorder [None]
  - Myoclonus [None]
  - Disorientation [None]
  - Activities of daily living impaired [None]
  - Confusional state [None]
  - Hyperreflexia [None]
  - Ataxia [None]
  - Apraxia [None]
